FAERS Safety Report 19146969 (Version 3)
Quarter: 2021Q3

REPORT INFORMATION
  Report Type: Report from Study
  Country: US (occurrence: US)
  Receive Date: 20210416
  Receipt Date: 20210709
  Transmission Date: 20211014
  Serious: No
  Sender: FDA-Public Use
  Company Number: NVSC2021US079670

PATIENT
  Age: 29 Year
  Sex: Female

DRUGS (1)
  1. KESIMPTA [Suspect]
     Active Substance: OFATUMUMAB
     Indication: MULTIPLE SCLEROSIS
     Dosage: 20 MG, QMO
     Route: 058
     Dates: start: 20210107

REACTIONS (10)
  - Tongue pruritus [Unknown]
  - Feeling abnormal [Unknown]
  - Hypoaesthesia [Unknown]
  - Oropharyngeal pain [Unknown]
  - Photosensitivity reaction [Unknown]
  - Depressed mood [Unknown]
  - Illness [Unknown]
  - Asthenia [Unknown]
  - Pain [Unknown]
  - Panic disorder [Unknown]

NARRATIVE: CASE EVENT DATE: 20210107
